FAERS Safety Report 7643658-6 (Version None)
Quarter: 2011Q3

REPORT INFORMATION
  Report Type: 
  Country: None (occurrence: None)
  Receive Date: 20110729
  Receipt Date: 20110722
  Transmission Date: 20111222
  Serious: Yes (Hospitalization)
  Sender: FDA-Public Use
  Company Number: PHHY2010US75924

PATIENT
  Sex: Female
  Weight: 59 kg

DRUGS (7)
  1. FENTANYL [Concomitant]
     Indication: PAIN
     Route: 061
     Dates: start: 20100401
  2. DILANTIN [Concomitant]
     Indication: CONVULSION
     Route: 048
  3. EXJADE [Suspect]
     Indication: IRON OVERLOAD
     Dosage: 1250 MG, DAILY
     Route: 048
     Dates: start: 20070401
  4. HYDREA [Concomitant]
     Dosage: 1500 MG, QD
     Route: 048
     Dates: start: 20050901
  5. CORTAB [Concomitant]
     Indication: PAIN
     Route: 048
     Dates: start: 20020101
  6. ELAVIL [Concomitant]
     Route: 048
  7. FOLIC ACID [Concomitant]
     Indication: ANAEMIA
     Route: 048

REACTIONS (2)
  - CONVULSION [None]
  - SEDATION [None]
